FAERS Safety Report 16617602 (Version 1)
Quarter: 2019Q3

REPORT INFORMATION
  Report Type: Report from Study
  Country: FR (occurrence: FR)
  Receive Date: 20190723
  Receipt Date: 20190723
  Transmission Date: 20191004
  Serious: Yes (Other)
  Sender: FDA-Public Use
  Company Number: FR-TEVA-2019-FR-1081657

PATIENT
  Age: 15 Year
  Sex: Male

DRUGS (1)
  1. AMOXICILLIN. [Suspect]
     Active Substance: AMOXICILLIN
     Route: 065

REACTIONS (6)
  - Type I hypersensitivity [Unknown]
  - Bronchospasm [Unknown]
  - Conjunctivitis [Unknown]
  - Rash maculo-papular [Unknown]
  - Malaise [Unknown]
  - Urticaria [Unknown]
